FAERS Safety Report 14858197 (Version 1)
Quarter: 2018Q2

REPORT INFORMATION
  Report Type: Spontaneous
  Country: US (occurrence: US)
  Receive Date: 20180508
  Receipt Date: 20180508
  Transmission Date: 20180711
  Serious: No
  Sender: FDA-Public Use
  Company Number: US-SHIRE-US201817174

PATIENT
  Sex: Female

DRUGS (1)
  1. XIIDRA [Suspect]
     Active Substance: LIFITEGRAST
     Indication: PRODUCT USED FOR UNKNOWN INDICATION
     Dosage: UNK, ONE DOSE
     Route: 047
     Dates: start: 20180425, end: 20180426

REACTIONS (3)
  - Instillation site pain [Unknown]
  - Flushing [Unknown]
  - Instillation site swelling [Unknown]
